FAERS Safety Report 4600636-9 (Version None)
Quarter: 2005Q1

REPORT INFORMATION
  Report Type: 
  Country: None (occurrence: None)
  Receive Date: 20050304
  Receipt Date: 20050217
  Transmission Date: 20050727
  Serious: Yes (Hospitalization)
  Sender: FDA-Public Use
  Company Number: 2005-BP-02836YA

PATIENT
  Age: 56 Year
  Sex: Male

DRUGS (6)
  1. OMIX (TAMSULOSIN HYDROCHLORIDE) (TAMSULOSIN) (NR) [Suspect]
     Dosage: 1 DF (NR) PO
     Route: 048
  2. DEPAMIDE (VALPROMIDE) (NR) [Suspect]
     Dosage: 1DF (NR) PO
     Route: 048
  3. LASILIX (FUROSEMIDE) (NR) [Suspect]
     Dosage: 40 MG (NR) PO
     Route: 048
  4. COVERSYL (PERINDOPRIL) (NR) [Suspect]
     Dosage: 2 MG (NR) PO
     Route: 048
  5. IXEL (MILNACIPRAN) (NR) [Suspect]
     Dosage: PO
     Route: 048
     Dates: start: 20041217
  6. CADENS (CALCITONIN, SALMON) (NR) [Suspect]
     Dates: start: 20041211, end: 20050104

REACTIONS (5)
  - ATRIOVENTRICULAR BLOCK FIRST DEGREE [None]
  - HYPOTENSION [None]
  - LOSS OF CONSCIOUSNESS [None]
  - MALAISE [None]
  - SUPRAVENTRICULAR TACHYCARDIA [None]
